FAERS Safety Report 7668624-6 (Version None)
Quarter: 2011Q3

REPORT INFORMATION
  Report Type: 
  Country: None (occurrence: None)
  Receive Date: 20110808
  Receipt Date: 20110808
  Transmission Date: 20111222
  Serious: Yes (Life-Threatening)
  Sender: FDA-Public Use
  Company Number: None

PATIENT
  Sex: Male
  Weight: 72.574 kg

DRUGS (1)
  1. MELOXICAM [Suspect]
     Indication: ARTHRITIS
     Dosage: 1 TIME PER DAT BY MOUTH
     Route: 048
     Dates: start: 19940101, end: 20110804

REACTIONS (1)
  - GASTROINTESTINAL HAEMORRHAGE [None]
